FAERS Safety Report 7180702-7 (Version None)
Quarter: 2010Q4

REPORT INFORMATION
  Report Type: 
  Country: None (occurrence: None)
  Receive Date: 20101221
  Receipt Date: 20101213
  Transmission Date: 20110411
  Serious: Yes (Hospitalization)
  Sender: FDA-Public Use
  Company Number: GB-SANOFI-AVENTIS-2010SA075323

PATIENT
  Age: 73 Year
  Sex: Male

DRUGS (13)
  1. LANSOPRAZOLE [Suspect]
     Route: 065
  2. METRONIDAZOLE [Suspect]
  3. OMEPRAZOLE [Suspect]
  4. PARACETAMOL [Suspect]
  5. BENDROFLUMETHIAZIDE [Suspect]
  6. OMACOR [Suspect]
     Route: 048
  7. SIMVASTATIN [Suspect]
     Route: 048
  8. TAZOCIN [Suspect]
  9. ASPIRIN [Concomitant]
     Route: 048
  10. BECLOMETHASONE DIPROPIONATE [Concomitant]
  11. CLEXANE [Concomitant]
     Route: 058
  12. FELODIPINE [Concomitant]
     Route: 048
  13. FLUTICASONE PROPIONATE [Concomitant]

REACTIONS (2)
  - JAUNDICE [None]
  - LIVER FUNCTION TEST ABNORMAL [None]
